FAERS Safety Report 7776392-2 (Version None)
Quarter: 2011Q3

REPORT INFORMATION
  Report Type: 
  Country: None (occurrence: None)
  Receive Date: 20110926
  Receipt Date: 20110922
  Transmission Date: 20111222
  Serious: Yes (Other)
  Sender: FDA-Public Use
  Company Number: JP-PFIZER INC-2011225091

PATIENT
  Age: 69 Year
  Sex: Female
  Weight: 54 kg

DRUGS (5)
  1. EVISTA [Concomitant]
     Dosage: UNK
     Route: 048
  2. VARENICLINE TARTRATE [Suspect]
     Dosage: 0.5 MG, 2X/DAY
     Dates: start: 20110829, end: 20110902
  3. VARENICLINE TARTRATE [Suspect]
     Dosage: 1 MG, 2X/DAY
     Dates: start: 20110903, end: 20110907
  4. VARENICLINE TARTRATE [Suspect]
     Indication: SMOKING CESSATION THERAPY
     Dosage: 0.5 MG, 1X/DAY
     Dates: start: 20110826, end: 20110828
  5. ZEPOLAS [Concomitant]
     Dosage: UNK
     Route: 062

REACTIONS (2)
  - ALTERED STATE OF CONSCIOUSNESS [None]
  - NAUSEA [None]
